FAERS Safety Report 20680361 (Version 2)
Quarter: 2022Q4

REPORT INFORMATION
  Report Type: Spontaneous
  Country: US (occurrence: US)
  Receive Date: 20220406
  Receipt Date: 20221219
  Transmission Date: 20230112
  Serious: No
  Sender: FDA-Public Use
  Company Number: US-009507513-2204USA002042

PATIENT
  Sex: Male

DRUGS (2)
  1. KEYTRUDA [Suspect]
     Active Substance: PEMBROLIZUMAB
     Dosage: UNK
     Route: 042
  2. HERBALS\TURMERIC [Suspect]
     Active Substance: HERBALS\TURMERIC
     Dosage: UNK

REACTIONS (4)
  - Rash morbilliform [Unknown]
  - Hot flush [Unknown]
  - Throat tightness [Unknown]
  - Flushing [Unknown]

NARRATIVE: CASE EVENT DATE: 20221101
